FAERS Safety Report 15813996 (Version 1)
Quarter: 2019Q1

REPORT INFORMATION
  Report Type: Spontaneous
  Country: JP (occurrence: JP)
  Receive Date: 20190111
  Receipt Date: 20190111
  Transmission Date: 20190417
  Serious: Yes (Hospitalization)
  Sender: FDA-Public Use
  Company Number: JP-JNJFOC-20190103936

PATIENT
  Age: 87 Year
  Sex: Male
  Weight: 49.7 kg

DRUGS (14)
  1. THYRADIN-S [Concomitant]
     Active Substance: LEVOTHYROXINE
     Route: 065
     Dates: start: 20180807, end: 20180919
  2. NOVAMIN (PROCHLORPERAZINE) [Concomitant]
     Active Substance: PROCHLORPERAZINE
     Route: 065
     Dates: start: 20180907, end: 20180919
  3. ETIZOLAM [Concomitant]
     Active Substance: ETIZOLAM
     Route: 065
     Dates: start: 201803, end: 20180915
  4. CETIL                              /00884302/ [Concomitant]
     Route: 065
     Dates: start: 201803, end: 20180919
  5. PEMBROLIZUMAB. [Suspect]
     Active Substance: PEMBROLIZUMAB
     Indication: RENAL CELL CARCINOMA
     Route: 042
     Dates: start: 20180828, end: 20180828
  6. IMIDAPRIL HYDROCHLORIDE [Concomitant]
     Active Substance: IMIDAPRIL HYDROCHLORIDE
     Route: 065
     Dates: start: 20180218
  7. AMLODIN [Concomitant]
     Active Substance: AMLODIPINE BESYLATE
     Route: 065
  8. LYRICA [Concomitant]
     Active Substance: PREGABALIN
     Route: 065
     Dates: start: 201803, end: 20180921
  9. RINDERON V [Concomitant]
     Active Substance: BETAMETHASONE VALERATE
     Route: 065
     Dates: start: 20180807, end: 20180928
  10. TRAMADOL HYDROCHLORIDE. [Suspect]
     Active Substance: TRAMADOL HYDROCHLORIDE
     Indication: ANALGESIC THERAPY
     Route: 048
     Dates: start: 20180904, end: 20180918
  11. EPACADOSTAT [Suspect]
     Active Substance: EPACADOSTAT
     Indication: RENAL CELL CARCINOMA
     Route: 048
     Dates: start: 20180424, end: 20180827
  12. HEPARINOID [Concomitant]
     Active Substance: CHONDROITIN SULFATE (BOVINE)
     Route: 065
     Dates: start: 20180828, end: 20180928
  13. LIMAPROST ALFADEX [Concomitant]
     Active Substance: LIMAPROST
     Route: 065
     Dates: start: 201803, end: 20180919
  14. PEMBROLIZUMAB. [Suspect]
     Active Substance: PEMBROLIZUMAB
     Indication: RENAL CELL CARCINOMA
     Route: 042
     Dates: start: 20180424, end: 20180807

REACTIONS (2)
  - Aspiration [Not Recovered/Not Resolved]
  - Decreased appetite [Not Recovered/Not Resolved]

NARRATIVE: CASE EVENT DATE: 20180917
